FAERS Safety Report 6302099-4 (Version None)
Quarter: 2009Q3

REPORT INFORMATION
  Report Type: 
  Country: None (occurrence: None)
  Receive Date: 20090807
  Receipt Date: 20090804
  Transmission Date: 20100115
  Serious: Yes (Other)
  Sender: FDA-Public Use
  Company Number: US-JNJCH-2009021196

PATIENT
  Age: 67 Year
  Sex: Female
  Weight: 113.4 kg

DRUGS (3)
  1. BENADRYL [Suspect]
     Indication: DRUG USE FOR UNKNOWN INDICATION
     Dosage: TEXT:UNSPECIFIED
     Route: 042
  2. TAXOTERE [Suspect]
     Indication: CHEMOTHERAPY
     Dosage: TEXT:UNSPECIFIED
     Route: 065
  3. TRASTUZUMAB [Suspect]
     Indication: CHEMOTHERAPY
     Dosage: TEXT:UNSPECIFIED
     Route: 065

REACTIONS (4)
  - HYPERSENSITIVITY [None]
  - INSOMNIA [None]
  - NOCTURIA [None]
  - PHARYNGEAL OEDEMA [None]
